FAERS Safety Report 5809069-0 (Version None)
Quarter: 2008Q3

REPORT INFORMATION
  Report Type: 
  Country: None (occurrence: None)
  Receive Date: 20080711
  Receipt Date: 20080711
  Transmission Date: 20090109
  Serious: No
  Sender: FDA-Public Use
  Company Number: None

PATIENT
  Age: 62 Year
  Sex: Female
  Weight: 86.1834 kg

DRUGS (2)
  1. LEVAQUIN [Suspect]
     Indication: INCONTINENCE
     Dosage: TWO WEEKS?
     Dates: start: 20020118, end: 20080128
  2. LEVAQUIN [Suspect]
     Indication: SURGERY
     Dosage: TWO WEEKS?
     Dates: start: 20020118, end: 20080128

REACTIONS (3)
  - ARTHRALGIA [None]
  - GAIT DISTURBANCE [None]
  - MOVEMENT DISORDER [None]
